FAERS Safety Report 12242495 (Version 1)
Quarter: 2016Q2

REPORT INFORMATION
  Report Type: Spontaneous
  Country: US (occurrence: None)
  Receive Date: 20160405
  Receipt Date: 20160405
  Transmission Date: 20160815
  Serious: Yes (Other)
  Sender: FDA-Public Use
  Company Number: None

PATIENT
  Age: 75 Year
  Sex: Female
  Weight: 97.07 kg

DRUGS (3)
  1. STENOL [Concomitant]
  2. LOW DOSE ASPIRIN [Concomitant]
     Active Substance: ASPIRIN
  3. AMLODIPINE [Suspect]
     Active Substance: AMLODIPINE BESYLATE
     Indication: HYPERTENSION
     Dosage: 1/2 PILL DAILY MOUTH
     Route: 048
     Dates: start: 20141006

REACTIONS (6)
  - Dysphagia [None]
  - Alopecia [None]
  - Swollen tongue [None]
  - Unevaluable event [None]
  - Hair growth abnormal [None]
  - Dizziness [None]

NARRATIVE: CASE EVENT DATE: 201404
